FAERS Safety Report 5042845-3 (Version None)
Quarter: 2006Q3

REPORT INFORMATION
  Report Type: 
  Country: None (occurrence: None)
  Receive Date: 20060705
  Receipt Date: 20050726
  Transmission Date: 20061208
  Serious: Yes (Hospitalization)
  Sender: FDA-Public Use
  Company Number: JP-GLAXOSMITHKLINE-B0389128A

PATIENT
  Age: 56 Year
  Sex: Male
  Weight: 50 kg

DRUGS (3)
  1. VALTREX [Suspect]
     Indication: HERPES ZOSTER
     Dosage: 1000MG PER DAY
     Route: 048
     Dates: start: 20050721, end: 20050724
  2. ZOVIRAX [Suspect]
     Indication: HERPES ZOSTER
     Dosage: 200MG PER DAY
     Route: 048
     Dates: start: 20050719, end: 20050719
  3. ZOVIRAX [Suspect]
     Dosage: 125MG PER DAY
     Route: 042
     Dates: start: 20050720, end: 20050722

REACTIONS (4)
  - DYSARTHRIA [None]
  - GAIT DISTURBANCE [None]
  - MENINGITIS [None]
  - TOXIC INDUCED ENCEPHALOPATHY [None]
